FAERS Safety Report 11213261 (Version 1)
Quarter: 2015Q2

REPORT INFORMATION
  Report Type: Report from Study
  Country: FR (occurrence: FR)
  Receive Date: 20150623
  Receipt Date: 20150623
  Transmission Date: 20150821
  Serious: Yes (Hospitalization)
  Sender: FDA-Public Use
  Company Number: FR-GLAXOSMITHKLINE-FR2015GSK087854

PATIENT
  Age: 46 Year
  Sex: Male

DRUGS (9)
  1. INEXIUM [Concomitant]
     Active Substance: ESOMEPRAZOLE
  2. FLUVASTATIN [Concomitant]
     Active Substance: FLUVASTATIN SODIUM
  3. OMEGA-3-ACID ETHYL ESTERS. [Suspect]
     Active Substance: OMEGA-3-ACID ETHYL ESTERS
     Indication: ISCHAEMIC HEART DISEASE PROPHYLAXIS
     Dosage: UNK
     Route: 048
     Dates: start: 20090323, end: 20140309
  4. TAHOR [Concomitant]
     Active Substance: ATORVASTATIN CALCIUM
  5. EZETROL [Concomitant]
     Active Substance: EZETIMIBE
  6. KARDEGIC [Concomitant]
     Active Substance: ASPIRIN LYSINE
  7. DETENSIEL [Concomitant]
     Active Substance: BISOPROLOL FUMARATE
  8. COVERSYL [Concomitant]
     Active Substance: PERINDOPRIL
  9. PLAVIX [Concomitant]
     Active Substance: CLOPIDOGREL BISULFATE

REACTIONS (2)
  - Arteriogram coronary [Recovered/Resolved]
  - Chest pain [Recovered/Resolved]

NARRATIVE: CASE EVENT DATE: 20110314
